FAERS Safety Report 15320653 (Version 3)
Quarter: 2018Q3

REPORT INFORMATION
  Report Type: Spontaneous
  Country: FR (occurrence: FR)
  Receive Date: 20180827
  Receipt Date: 20180911
  Transmission Date: 20181010
  Serious: Yes (Other)
  Sender: FDA-Public Use
  Company Number: FR-ROCHE-2175254

PATIENT
  Age: 70 Year
  Sex: Male

DRUGS (10)
  1. PREDNISONE. [Suspect]
     Active Substance: PREDNISONE
     Indication: METASTASES TO KIDNEY
     Dosage: UNK (6 CYCLES)
     Route: 065
  2. ONCOVIN [Suspect]
     Active Substance: VINCRISTINE SULFATE
     Indication: METASTASES TO KIDNEY
  3. CYCLOPHOSPHAMIDE. [Suspect]
     Active Substance: CYCLOPHOSPHAMIDE
     Indication: METASTASES TO KIDNEY
  4. RITUXIMAB. [Suspect]
     Active Substance: RITUXIMAB
     Indication: METASTASES TO KIDNEY
  5. PREDNISONE. [Suspect]
     Active Substance: PREDNISONE
     Indication: CHRONIC LYMPHOCYTIC LEUKAEMIA
  6. ONCOVIN [Suspect]
     Active Substance: VINCRISTINE SULFATE
     Indication: CHRONIC LYMPHOCYTIC LEUKAEMIA
     Dosage: UNK (6 CYCLES)
     Route: 065
  7. RITUXIMAB. [Suspect]
     Active Substance: RITUXIMAB
     Indication: CHRONIC LYMPHOCYTIC LEUKAEMIA
     Dosage: UNK (6 CYCLES)
     Route: 065
  8. DOXORUBICIN [Suspect]
     Active Substance: DOXORUBICIN
     Indication: CHRONIC LYMPHOCYTIC LEUKAEMIA
  9. CYCLOPHOSPHAMIDE. [Suspect]
     Active Substance: CYCLOPHOSPHAMIDE
     Indication: CHRONIC LYMPHOCYTIC LEUKAEMIA
     Dosage: UNK (6 CYCLES)
     Route: 065
  10. DOXORUBICIN [Suspect]
     Active Substance: DOXORUBICIN
     Indication: METASTASES TO KIDNEY
     Dosage: UNK (6 CYCLES)
     Route: 065

REACTIONS (3)
  - B-cell lymphoma [Unknown]
  - Intentional product use issue [Unknown]
  - Off label use [Unknown]
